FAERS Safety Report 16690258 (Version 1)
Quarter: 2019Q3

REPORT INFORMATION
  Report Type: Spontaneous
  Country: US (occurrence: US)
  Receive Date: 20190809
  Receipt Date: 20190809
  Transmission Date: 20191004
  Serious: No
  Sender: FDA-Public Use
  Company Number: US-ROCHE-2142848

PATIENT
  Age: 86 Year
  Sex: Female
  Weight: 54.93 kg

DRUGS (3)
  1. BONIVA [Suspect]
     Active Substance: IBANDRONATE SODIUM
     Indication: UNEVALUABLE EVENT
     Dosage: FIRST DAY OF THE MONTH ;ONGOING: UNKNOWN
     Route: 048
  2. IBUPROFEN. [Concomitant]
     Active Substance: IBUPROFEN
     Dosage: 10 DAYS ;ONGOING: NO
     Route: 065
  3. CYCLOBENZAPRIN [Concomitant]
     Active Substance: CYCLOBENZAPRINE

REACTIONS (13)
  - Muscle strain [Recovered/Resolved]
  - Neck pain [Recovering/Resolving]
  - Tension headache [Not Recovered/Not Resolved]
  - Musculoskeletal disorder [Recovered/Resolved]
  - Ill-defined disorder [Unknown]
  - Feeling abnormal [Not Recovered/Not Resolved]
  - Weight decreased [Unknown]
  - Muscle strain [Not Recovered/Not Resolved]
  - Stomatitis [Unknown]
  - Joint stiffness [Recovering/Resolving]
  - Migraine [Not Recovered/Not Resolved]
  - Joint range of motion decreased [Not Recovered/Not Resolved]
  - Pain in jaw [Recovering/Resolving]

NARRATIVE: CASE EVENT DATE: 201805
